FAERS Safety Report 6251124-8 (Version None)
Quarter: 2009Q2

REPORT INFORMATION
  Report Type: 
  Country: None (occurrence: None)
  Receive Date: 20090626
  Receipt Date: 20090611
  Transmission Date: 20091009
  Serious: Yes (Death, Life-Threatening, Hospitalization)
  Sender: FDA-Public Use
  Company Number: DSA_33890_2009

PATIENT
  Sex: Male

DRUGS (3)
  1. DILTIAZEM HYDROCHLORIDE [Suspect]
     Indication: ARRHYTHMIA
     Dosage: (60 MG HS ORAL)
     Route: 048
  2. TIOTROPIUM BROMIDE              (SPIRIVA-TIOTROPIUM  BROMIDE) 18 UG [Suspect]
     Indication: CHRONIC OBSTRUCTIVE PULMONARY DISEASE
     Dosage: (18 UG QD RESPIRATORY (INHALATION))
     Route: 055
     Dates: start: 20080101
  3. FORASEQ /01558501/ [Concomitant]

REACTIONS (6)
  - CARDIAC ARREST [None]
  - CHEST PAIN [None]
  - CHRONIC OBSTRUCTIVE PULMONARY DISEASE [None]
  - CONDITION AGGRAVATED [None]
  - DYSGEUSIA [None]
  - TONSILLAR INFLAMMATION [None]
